FAERS Safety Report 11878637 (Version 1)
Quarter: 2015Q4

REPORT INFORMATION
  Report Type: Spontaneous
  Country: US (occurrence: US)
  Receive Date: 20151230
  Receipt Date: 20151230
  Transmission Date: 20160305
  Serious: Yes (Hospitalization)
  Sender: FDA-Public Use
  Company Number: US-BAYER-2015-497599

PATIENT
  Age: 50 Year
  Sex: Female
  Weight: 85.71 kg

DRUGS (2)
  1. MIRENA [Suspect]
     Active Substance: LEVONORGESTREL
     Indication: CONTRACEPTION
     Dosage: 20 MCG/24HR, CONT
     Route: 015
     Dates: start: 20131119, end: 201401
  2. MIRENA [Suspect]
     Active Substance: LEVONORGESTREL
     Indication: MENORRHAGIA

REACTIONS (13)
  - Dyspareunia [None]
  - Depression [Not Recovered/Not Resolved]
  - Genital haemorrhage [None]
  - Syncope [None]
  - Off label use of device [None]
  - Pelvic pain [None]
  - Uterine perforation [None]
  - Sepsis [None]
  - Dyspnoea [None]
  - Fear [Not Recovered/Not Resolved]
  - Loss of consciousness [None]
  - Dizziness [None]
  - Anxiety [Not Recovered/Not Resolved]

NARRATIVE: CASE EVENT DATE: 20131119
